FAERS Safety Report 16186836 (Version 1)
Quarter: 2019Q2

REPORT INFORMATION
  Report Type: Spontaneous
  Country: FR (occurrence: FR)
  Receive Date: 20190411
  Receipt Date: 20190411
  Transmission Date: 20190711
  Serious: Yes (Hospitalization)
  Sender: FDA-Public Use
  Company Number: FR-PFIZER INC-HQWYE058222SEP06

PATIENT
  Age: 61 Year
  Sex: Female
  Weight: 73.92 kg

DRUGS (16)
  1. SPASFON [Concomitant]
     Dosage: UNK
  2. EUPANTOL [Suspect]
     Active Substance: PANTOPRAZOLE SODIUM
     Dosage: 1.0 DF, 1X/DAY
     Route: 048
     Dates: start: 20050701
  3. ARIMIDEX [Suspect]
     Active Substance: ANASTROZOLE
     Indication: BREAST CANCER
     Dosage: 1.0 DF, 1X/DAY
     Route: 048
     Dates: start: 20050721
  4. LEVOTHYROX [Concomitant]
     Active Substance: LEVOTHYROXINE
     Dosage: UNK
     Route: 048
     Dates: start: 200507
  5. LOPERAMIDE [Concomitant]
     Active Substance: LOPERAMIDE
     Dosage: UNK
  6. ARESTAL [Concomitant]
     Active Substance: LOPERAMIDE OXIDE
     Dosage: UNK
  7. DAFALGAN [Concomitant]
     Active Substance: ACETAMINOPHEN
     Dosage: UNK
     Route: 048
     Dates: start: 200511
  8. TAMOXIFEN [Concomitant]
     Active Substance: TAMOXIFEN
     Indication: BREAST CANCER
     Dosage: UNK
     Route: 048
     Dates: end: 20050721
  9. BI-PROFENID [Suspect]
     Active Substance: KETOPROFEN
     Dosage: 150 MILLIGRAM, QD
     Route: 048
     Dates: start: 20051101, end: 200511
  10. ABUFENE [Concomitant]
     Dosage: UNK
  11. ERCEFURYL [Concomitant]
     Active Substance: NIFUROXAZIDE
     Dosage: UNK
  12. TIORFAN [Concomitant]
     Active Substance: RACECADOTRIL
     Dosage: UNK
  13. BREXINE [Suspect]
     Active Substance: PIROXICAM BETADEX
     Dosage: 20 MILLIGRAM, QD
     Route: 048
     Dates: start: 20051101, end: 200511
  14. NEXEN [Suspect]
     Active Substance: NIMESULIDE
     Dosage: ^DF^
     Route: 048
     Dates: start: 20051101, end: 200511
  15. DICETEL [Concomitant]
     Active Substance: PINAVERIUM BROMIDE
     Dosage: UNK
  16. FENOFIBRATE. [Concomitant]
     Active Substance: FENOFIBRATE
     Indication: HYPERCHOLESTEROLAEMIA
     Dosage: UNK, QD
     Route: 048

REACTIONS (2)
  - Arthralgia [Unknown]
  - Colitis microscopic [Recovering/Resolving]

NARRATIVE: CASE EVENT DATE: 20060101
